FAERS Safety Report 23974290 (Version 1)
Quarter: 2024Q2

REPORT INFORMATION
  Report Type: Report from Study
  Country: US (occurrence: US)
  Receive Date: 20240614
  Receipt Date: 20240614
  Transmission Date: 20240715
  Serious: No
  Sender: FDA-Public Use
  Company Number: US-ACADIA PHARMACEUTICALS INC.-ACA-2024-PIM-002512

PATIENT
  Age: 75 Year
  Sex: Female

DRUGS (13)
  1. NUPLAZID [Suspect]
     Active Substance: PIMAVANSERIN TARTRATE
     Indication: Parkinson^s disease
     Dosage: 34 MILLIGRAM, QD
     Route: 048
     Dates: start: 202302
  2. NUPLAZID [Suspect]
     Active Substance: PIMAVANSERIN TARTRATE
     Indication: Dyskinesia
  3. SEROQUEL [Concomitant]
     Active Substance: QUETIAPINE FUMARATE
  4. CELECOXIB [Concomitant]
     Active Substance: CELECOXIB
  5. VITAMIN D3 [Concomitant]
     Active Substance: CHOLECALCIFEROL
  6. NOURIANZ [Concomitant]
     Active Substance: ISTRADEFYLLINE
  7. XARELTO [Concomitant]
     Active Substance: RIVAROXABAN
  8. COLACE [Concomitant]
     Active Substance: DOCUSATE SODIUM
  9. TOPROL XL [Concomitant]
     Active Substance: METOPROLOL SUCCINATE
  10. BIOTIN [Concomitant]
     Active Substance: BIOTIN
  11. MIDODRINE [Concomitant]
     Active Substance: MIDODRINE
  12. MYRBETRIQ [Concomitant]
     Active Substance: MIRABEGRON
  13. DUOPA [Concomitant]
     Active Substance: CARBIDOPA\LEVODOPA

REACTIONS (2)
  - Device occlusion [Unknown]
  - Medical device change [Unknown]

NARRATIVE: CASE EVENT DATE: 20240514
